FAERS Safety Report 8505460-2 (Version None)
Quarter: 2012Q2

REPORT INFORMATION
  Report Type: 
  Country: None (occurrence: None)
  Receive Date: 20120405
  Receipt Date: 20090804
  Transmission Date: 20120825
  Serious: Yes (Other)
  Sender: FDA-Public Use
  Company Number: PHEH2009US08127

PATIENT
  Age: 78 Year
  Sex: Female
  Weight: 63 kg

DRUGS (12)
  1. FLONASE [Suspect]
     Indication: RHINITIS ALLERGIC
     Dosage: INTRANASAL
     Route: 045
  2. MIACALCIN (CALCITONIN, SALMON) NASAL SPRAY [Concomitant]
  3. VITAMINS (NO INGREDIENTS/SUBSTANCES) [Concomitant]
  4. FISH OIL (FISH OIL) [Concomitant]
  5. PRAVASTATIN [Concomitant]
  6. SINGULAIR [Concomitant]
  7. DIOVAN ^CIBA-GEICY^ (VALSARTAN) [Concomitant]
  8. CALCIUM CARBONATE [Concomitant]
  9. CLINDAMYCIN [Concomitant]
  10. PENICILLIN ^GRUNENTHAL^ (BENZYLPENICLLIN SODIUM) [Concomitant]
  11. ASPIRIN ^BAYER^ (ACETYLSALYIC ACID) [Concomitant]
  12. RECLAST [Suspect]
     Indication: OSTEOPOROSIS
     Dosage: 4 MG YEARLY, IV INFUSION
     Route: 042
     Dates: start: 20090409, end: 20090409

REACTIONS (4)
  - OSTEONECROSIS [None]
  - MYALGIA [None]
  - JAW DISORDER [None]
  - TOOTH INFECTION [None]
